FAERS Safety Report 8009034-1 (Version None)
Quarter: 2011Q4

REPORT INFORMATION
  Report Type: 
  Country: None (occurrence: None)
  Receive Date: 20111221
  Receipt Date: 20111215
  Transmission Date: 20120403
  Serious: Yes (Life-Threatening)
  Sender: FDA-Public Use
  Company Number: SP05362

PATIENT
  Age: 45 Year
  Sex: Male

DRUGS (2)
  1. VISICOL [Suspect]
     Indication: BOWEL PREPARATION
     Dosage: (45 GM),ORAL
     Route: 048
     Dates: start: 20111120, end: 20111120
  2. MESALAMINE [Concomitant]

REACTIONS (9)
  - ABDOMINAL PAIN [None]
  - CHEST PAIN [None]
  - HAEMOGLOBIN DECREASED [None]
  - EMPHYSEMA [None]
  - INTRA-ABDOMINAL PRESSURE INCREASED [None]
  - HAEMATOCRIT DECREASED [None]
  - OESOPHAGEAL RUPTURE [None]
  - WHITE BLOOD CELL COUNT INCREASED [None]
  - HAEMATEMESIS [None]
